FAERS Safety Report 7032414-8 (Version None)
Quarter: 2010Q4

REPORT INFORMATION
  Report Type: 
  Country: None (occurrence: None)
  Receive Date: 20101007
  Receipt Date: 20101001
  Transmission Date: 20110411
  Serious: Yes (Hospitalization)
  Sender: FDA-Public Use
  Company Number: US-ALEXION-A200901111

PATIENT
  Sex: Female

DRUGS (15)
  1. SOLIRIS [Suspect]
     Indication: PAROXYSMAL NOCTURNAL HAEMOGLOBINURIA
     Dosage: 600 MG, QW
     Route: 042
     Dates: start: 20081017, end: 20081107
  2. SOLIRIS [Suspect]
     Dosage: 900 MG, Q2W
     Route: 042
     Dates: start: 20081114, end: 20091231
  3. ANTIBIOTICS [Concomitant]
     Dosage: UNK
  4. ANTIVIRALS NOS [Concomitant]
     Dosage: UNK
  5. DECITABINE [Suspect]
     Indication: ACUTE MYELOID LEUKAEMIA
     Dosage: X 5DAYS
     Dates: start: 20091205
  6. DIGOXIN [Concomitant]
  7. NORVASC [Concomitant]
  8. CALCIUM D3                         /00944201/ [Concomitant]
  9. CIPROFLOXACIN [Concomitant]
  10. FLONASE [Concomitant]
  11. FOLIC ACID [Concomitant]
  12. METOPROLOL TARTRATE [Concomitant]
  13. MULTI-VITAMINS [Concomitant]
  14. OMEPRAZOLE [Concomitant]
  15. PROCRIT                            /00909301/ [Concomitant]

REACTIONS (4)
  - ESCHERICHIA BACTERAEMIA [None]
  - NEUTROPENIA [None]
  - OROPHARYNGEAL PAIN [None]
  - PYREXIA [None]
